FAERS Safety Report 11638934 (Version 3)
Quarter: 2015Q4

REPORT INFORMATION
  Report Type: Spontaneous
  Country: JP (occurrence: JP)
  Receive Date: 20151018
  Receipt Date: 20151112
  Transmission Date: 20160304
  Serious: Yes (Hospitalization)
  Sender: FDA-Public Use
  Company Number: JP-TEVA-601404ISR

PATIENT
  Age: 46 Year
  Sex: Male

DRUGS (4)
  1. IDAMYCIN [Concomitant]
     Active Substance: IDARUBICIN HYDROCHLORIDE
  2. VESANOID [Concomitant]
     Active Substance: TRETINOIN
  3. TRISENOX [Suspect]
     Active Substance: ARSENIC TRIOXIDE
     Indication: ACUTE PROMYELOCYTIC LEUKAEMIA
     Dosage: DAY 1-UNKNOWN, DAY 30-DAY 35 (6 DAYS)
     Route: 065
  4. CYLOCIDE [Concomitant]
     Active Substance: CYTARABINE

REACTIONS (1)
  - Goodpasture^s syndrome [Recovered/Resolved]
